FAERS Safety Report 8973075 (Version 1)
Quarter: 2012Q4

REPORT INFORMATION
  Report Type: 
  Country: US (occurrence: US)
  Receive Date: 20121218
  Receipt Date: 20121218
  Transmission Date: 20130627
  Serious: No
  Sender: FDA-Public Use
  Company Number: US-BRISTOL-MYERS SQUIBB COMPANY-16982191

PATIENT
  Age: 16 Year
  Sex: Male

DRUGS (2)
  1. ABILIFY [Suspect]
  2. RITALIN [Concomitant]

REACTIONS (5)
  - Speech disorder [Unknown]
  - Photopsia [Unknown]
  - Feeling abnormal [Unknown]
  - Dystonia [Unknown]
  - Decreased appetite [Unknown]
